FAERS Safety Report 24133898 (Version 2)
Quarter: 2024Q3

REPORT INFORMATION
  Report Type: Spontaneous
  Country: DK (occurrence: DK)
  Receive Date: 20240724
  Receipt Date: 20240731
  Transmission Date: 20241016
  Serious: Yes (Death, Life-Threatening, Hospitalization, Other)
  Sender: PURDUE
  Company Number: None

PATIENT
  Age: 81 Year
  Sex: Female
  Weight: 48 kg

DRUGS (1)
  1. MORPHINE SULFATE [Suspect]
     Active Substance: MORPHINE SULFATE
     Indication: Pain
     Dosage: 10 MILLIGRAM, 0.5 DAY
     Route: 048
     Dates: start: 20240314, end: 20240318

REACTIONS (2)
  - Depressed level of consciousness [Fatal]
  - Overdose [Fatal]

NARRATIVE: CASE EVENT DATE: 20240301
